FAERS Safety Report 8874506 (Version 1)
Quarter: 2012Q4

REPORT INFORMATION
  Report Type: 
  Country: US (occurrence: US)
  Receive Date: 20121023
  Receipt Date: 20121023
  Transmission Date: 20130627
  Serious: No
  Sender: FDA-Public Use
  Company Number: US-VERTEX PHARMACEUTICAL INC.-2012-023223

PATIENT
  Age: 47 None
  Sex: Female
  Weight: 102 kg

DRUGS (3)
  1. INCIVEK [Suspect]
     Indication: HEPATITIS C
     Dosage: 750 mg, tid
     Route: 048
     Dates: start: 20120929
  2. RIBAVIRIN [Suspect]
     Indication: HEPATITIS C
     Dosage: 600mg AM, 400mg PM
     Dates: start: 20120929
  3. PEGASYS [Suspect]
     Indication: HEPATITIS C
     Dosage: 180 ?g, UNK
     Route: 058
     Dates: start: 20120928

REACTIONS (4)
  - Back pain [Not Recovered/Not Resolved]
  - Insomnia [Recovered/Resolved]
  - Rash [Not Recovered/Not Resolved]
  - Pruritus [Not Recovered/Not Resolved]
